FAERS Safety Report 7154231-0 (Version None)
Quarter: 2010Q4

REPORT INFORMATION
  Report Type: 
  Country: None (occurrence: None)
  Receive Date: 20101213
  Receipt Date: 20101201
  Transmission Date: 20110411
  Serious: Yes (Hospitalization, Other)
  Sender: FDA-Public Use
  Company Number: US-ROCHE-467565

PATIENT
  Sex: Male
  Weight: 72.6 kg

DRUGS (4)
  1. ACCUTANE [Suspect]
     Indication: ACNE
     Route: 048
     Dates: start: 19960909, end: 19961201
  2. ACCUTANE [Suspect]
     Route: 048
     Dates: start: 19980203, end: 19980401
  3. ACCUTANE [Suspect]
     Route: 048
     Dates: start: 19980601
  4. ACCUTANE [Suspect]
     Route: 048
     Dates: start: 19970101, end: 19970301

REACTIONS (12)
  - ANAEMIA [None]
  - COLITIS [None]
  - CROHN'S DISEASE [None]
  - DEPRESSION [None]
  - INFLAMMATORY BOWEL DISEASE [None]
  - IRRITABLE BOWEL SYNDROME [None]
  - MYOPIA [None]
  - PARONYCHIA [None]
  - SCHIZOPHRENIA [None]
  - SMALL INTESTINAL OBSTRUCTION [None]
  - SUBSTANCE ABUSE [None]
  - SUICIDAL IDEATION [None]
